FAERS Safety Report 17899429 (Version 1)
Quarter: 2020Q2

REPORT INFORMATION
  Report Type: Spontaneous
  Country: US (occurrence: US)
  Receive Date: 20200615
  Receipt Date: 20200615
  Transmission Date: 20200714
  Serious: Yes (Other)
  Sender: FDA-Public Use
  Company Number: None

PATIENT
  Age: 60 Year
  Sex: Female
  Weight: 86.5 kg

DRUGS (18)
  1. REMDESIVIR. [Suspect]
     Active Substance: REMDESIVIR
     Indication: COVID-19
     Route: 041
     Dates: start: 20200609, end: 20200612
  2. CEFEPIME 2G IV BID [Concomitant]
     Dates: start: 20200609
  3. DOCUSATE 100MG PO BID [Concomitant]
     Dates: start: 20200608
  4. VASOPRESSIN DRIP [Concomitant]
     Dates: start: 20200612, end: 20200614
  5. DEXMEDETOMIDINE DRIP [Concomitant]
     Dates: start: 20200611, end: 20200612
  6. NOREPINEPHRINE DRIP [Concomitant]
     Dates: start: 20200612
  7. FENTANYL DRIP [Concomitant]
     Dates: start: 20200612
  8. METHYLPREDNISOLONE 40MG IV Q12H [Concomitant]
     Dates: start: 20200611
  9. HEPARIN [Concomitant]
     Active Substance: HEPARIN SODIUM
     Dates: start: 20200612
  10. PROPOFOL DRIP [Concomitant]
     Active Substance: PROPOFOL
     Dates: start: 20200612
  11. AMIODARONE [Concomitant]
     Active Substance: AMIODARONE
  12. ENOXAPARIN 40MG SUBCUT BID [Concomitant]
     Dates: start: 20200611, end: 20200612
  13. VANCOMYCIN 1500MG IV DAILY [Concomitant]
     Dates: start: 20200609, end: 20200612
  14. AMIODARONE DRIP [Concomitant]
     Dates: start: 20200612, end: 20200613
  15. ALBUTEROL-IPRATROPIUM INHALATION SOLUTION [Concomitant]
     Dates: start: 20200609
  16. INSULIN LISPRO SLIDING SCALE [Concomitant]
  17. SENNA 8.6MG PO DAILY [Concomitant]
     Dates: start: 20200609
  18. TOCILIZUMAB 400MG ONCE SCHEDULED [Concomitant]
     Dates: start: 20200609, end: 20200609

REACTIONS (2)
  - Respiratory failure [None]
  - Glomerular filtration rate decreased [None]

NARRATIVE: CASE EVENT DATE: 20200612
